FAERS Safety Report 5046187-1 (Version None)
Quarter: 2006Q3

REPORT INFORMATION
  Report Type: 
  Country: None (occurrence: None)
  Receive Date: 20060710
  Receipt Date: 20060629
  Transmission Date: 20061208
  Serious: Yes (Hospitalization)
  Sender: FDA-Public Use
  Company Number: US-JNJFOC-20060606581

PATIENT
  Sex: Female

DRUGS (18)
  1. REMICADE [Suspect]
     Indication: RHEUMATOID ARTHRITIS
     Route: 042
  2. ASPIRIN [Concomitant]
  3. BONIVA [Concomitant]
  4. COREG [Concomitant]
  5. COZAAR [Concomitant]
  6. METHOTREXATE [Concomitant]
  7. FOLIC ACID [Concomitant]
  8. LASIX [Concomitant]
  9. LEVOXYL [Concomitant]
  10. MULTI-VITAMIN [Concomitant]
  11. NITROGLYCERIN [Concomitant]
  12. POTASSIUM [Concomitant]
  13. ACTOS [Concomitant]
  14. LIPITOR [Concomitant]
  15. DIABETA [Concomitant]
  16. PLAVIX [Concomitant]
  17. NORVASC [Concomitant]
  18. PROTONIX [Concomitant]

REACTIONS (1)
  - CORONARY ARTERY DISEASE [None]
